FAERS Safety Report 7506409-1 (Version None)
Quarter: 2011Q2

REPORT INFORMATION
  Report Type: 
  Country: None (occurrence: None)
  Receive Date: 20110520
  Receipt Date: 20110511
  Transmission Date: 20111010
  Serious: Yes (Hospitalization)
  Sender: FDA-Public Use
  Company Number: 2011US0113

PATIENT
  Age: 8 Year
  Sex: Female
  Weight: 20.9 kg

DRUGS (5)
  1. MAGNESIUM (MAGNESIUM) [Concomitant]
  2. POTASSIUM CITRATE [Concomitant]
  3. TYR EXPRESS [Concomitant]
  4. NEUTRA PHOS [Concomitant]
  5. ORFADIN [Suspect]
     Indication: TYROSINAEMIA
     Dosage: 20 MG, 2 IN 1 D, ORAL
     Route: 048
     Dates: start: 20091028, end: 20101028

REACTIONS (2)
  - OFF LABEL USE [None]
  - LIVER TRANSPLANT [None]
